FAERS Safety Report 5990105-6 (Version None)
Quarter: 2008Q4

REPORT INFORMATION
  Report Type: 
  Country: None (occurrence: None)
  Receive Date: 20081209
  Receipt Date: 20081124
  Transmission Date: 20090506
  Serious: Yes (Hospitalization)
  Sender: FDA-Public Use
  Company Number: US-1167971

PATIENT
  Age: 36 Year
  Sex: Male

DRUGS (5)
  1. ECONOPRED [Suspect]
     Indication: SINUSITIS
     Dosage: (10 MG TID 2 BOTTLES PER NEILMED NASAL IRRIGATION TID NASAL)
     Route: 045
     Dates: start: 20081112, end: 20081117
  2. TOBRAMYCIN SULFATE [Suspect]
     Indication: SINUSITIS
     Dosage: (80 MG TID 80 MG PER NEILMED NASAL IRRIGATION TID NASAL)
     Route: 045
     Dates: start: 20081112, end: 20081117
  3. FLUCONAZOLE [Suspect]
     Indication: SINUSITIS
     Dosage: (15 MG TID 15 MG PER NEILMED NASAL IRRIGATION TID NASAL)
     Route: 045
     Dates: start: 20081112, end: 20081117
  4. XANAX [Concomitant]
  5. SEROQUEL [Concomitant]

REACTIONS (12)
  - ANXIETY [None]
  - CONTUSION [None]
  - DEPRESSION [None]
  - HEADACHE [None]
  - IMPAIRED WORK ABILITY [None]
  - INSOMNIA [None]
  - IRRITABILITY [None]
  - NERVOUSNESS [None]
  - PANIC DISORDER [None]
  - PSYCHOTIC DISORDER [None]
  - SINUS HEADACHE [None]
  - TACHYPHRENIA [None]
